FAERS Safety Report 22903109 (Version 3)
Quarter: 2024Q2

REPORT INFORMATION
  Report Type: Report from Study
  Country: CA (occurrence: CA)
  Receive Date: 20230905
  Receipt Date: 20240429
  Transmission Date: 20240715
  Serious: Yes (Other)
  Sender: FDA-Public Use
  Company Number: CA-ABBVIE-5393821

PATIENT
  Sex: Male
  Weight: 93 kg

DRUGS (2)
  1. LUPRON DEPOT [Suspect]
     Active Substance: LEUPROLIDE ACETATE
     Indication: Prostate cancer
     Dosage: LAST ADMIN DATE: 2023
     Route: 030
     Dates: start: 20230303
  2. LENALIDOMIDE [Concomitant]
     Active Substance: LENALIDOMIDE
     Indication: Product used for unknown indication

REACTIONS (3)
  - Brachytherapy [Unknown]
  - Night sweats [Unknown]
  - Hot flush [Unknown]

NARRATIVE: CASE EVENT DATE: 20230101
